FAERS Safety Report 14455852 (Version 1)
Quarter: 2018Q1

REPORT INFORMATION
  Report Type: Spontaneous
  Country: RU (occurrence: RU)
  Receive Date: 20180130
  Receipt Date: 20180130
  Transmission Date: 20180509
  Serious: Yes (Hospitalization, Other)
  Sender: FDA-Public Use
  Company Number: RU-ASTRAZENECA-2018SE10297

PATIENT
  Age: 70 Year
  Sex: Female
  Weight: 68 kg

DRUGS (9)
  1. THROMBO ASS [Concomitant]
     Active Substance: ASPIRIN
  2. BRILINTA [Suspect]
     Active Substance: TICAGRELOR
     Indication: ANGINA PECTORIS
     Route: 048
     Dates: start: 201607
  3. BRILINTA [Suspect]
     Active Substance: TICAGRELOR
     Indication: ANGINA PECTORIS
     Route: 048
     Dates: start: 20161223, end: 20171227
  4. BISOPROLOL [Concomitant]
     Active Substance: BISOPROLOL
  5. PRESTARIUM [Concomitant]
     Active Substance: PERINDOPRIL
  6. CAPTOPRIL. [Concomitant]
     Active Substance: CAPTOPRIL
  7. BRILINTA [Suspect]
     Active Substance: TICAGRELOR
     Indication: MYOCARDIAL INFARCTION
     Route: 048
     Dates: start: 20161223, end: 20171227
  8. BRILINTA [Suspect]
     Active Substance: TICAGRELOR
     Indication: MYOCARDIAL INFARCTION
     Route: 048
     Dates: start: 201607
  9. ATORVASTATIN [Concomitant]
     Active Substance: ATORVASTATIN

REACTIONS (3)
  - Off label use [Recovered/Resolved]
  - Product prescribing issue [Recovered/Resolved]
  - Angina pectoris [Recovered/Resolved]
